FAERS Safety Report 24756775 (Version 2)
Quarter: 2025Q1

REPORT INFORMATION
  Report Type: Spontaneous
  Country: JP (occurrence: JP)
  Receive Date: 20241220
  Receipt Date: 20250331
  Transmission Date: 20250409
  Serious: Yes (Death, Other)
  Sender: GENMAB
  Company Number: JP-GENMAB-2024-04628

PATIENT
  Age: 47 Year
  Sex: Female

DRUGS (1)
  1. EPKINLY [Suspect]
     Active Substance: EPCORITAMAB-BYSP
     Indication: Diffuse large B-cell lymphoma
     Route: 065

REACTIONS (1)
  - Diffuse large B-cell lymphoma [Fatal]
